FAERS Safety Report 4930994-7 (Version None)
Quarter: 2006Q1

REPORT INFORMATION
  Report Type: 
  Country: None (occurrence: None)
  Receive Date: 20060227
  Receipt Date: 20060216
  Transmission Date: 20060701
  Serious: Yes (Hospitalization)
  Sender: FDA-Public Use
  Company Number: 2006021725

PATIENT
  Sex: Female

DRUGS (1)
  1. ZOLOFT [Suspect]
     Indication: SEASONAL AFFECTIVE DISORDER
     Dosage: ORAL
     Route: 048

REACTIONS (2)
  - PNEUMONIA [None]
  - SECONDARY HYPOTHYROIDISM [None]
